FAERS Safety Report 18395715 (Version 1)
Quarter: 2020Q4

REPORT INFORMATION
  Report Type: Spontaneous
  Country: US (occurrence: US)
  Receive Date: 20201018
  Receipt Date: 20201018
  Transmission Date: 20210114
  Serious: No
  Sender: FDA-Public Use
  Company Number: US-ASTRAZENECA-2020SF27871

PATIENT
  Sex: Female

DRUGS (1)
  1. BUDESONIDE AND FORMOTEROL AEROSOL [Suspect]
     Active Substance: BUDESONIDE\FORMOTEROL FUMARATE DIHYDRATE
     Dosage: 160/4.5, 120 INHALATIONS UNKNOWN
     Route: 055

REACTIONS (2)
  - Device issue [Unknown]
  - Dyspnoea [Unknown]
